FAERS Safety Report 7675226-4 (Version None)
Quarter: 2011Q3

REPORT INFORMATION
  Report Type: 
  Country: None (occurrence: None)
  Receive Date: 20110810
  Receipt Date: 20110810
  Transmission Date: 20111222
  Serious: Yes (Hospitalization)
  Sender: FDA-Public Use
  Company Number: None

PATIENT
  Age: 48 Year
  Sex: Female
  Weight: 133.3 kg

DRUGS (8)
  1. DAPTOMYCIN [Concomitant]
     Route: 042
  2. URSIDIOL [Concomitant]
     Route: 048
  3. CUBICIN [Suspect]
     Indication: CELLULITIS
     Dosage: 750 MG
     Route: 042
     Dates: start: 20110726, end: 20110727
  4. HYDROMORPHONE HCL [Concomitant]
     Route: 048
  5. CLINDAMYCIN [Concomitant]
     Route: 042
  6. CIPROFLOXACIN [Concomitant]
     Route: 048
  7. GABAPENTIN [Concomitant]
     Route: 048
  8. PANTOPRAZOLE [Concomitant]
     Route: 048

REACTIONS (1)
  - DRUG RASH WITH EOSINOPHILIA AND SYSTEMIC SYMPTOMS [None]
